FAERS Safety Report 16609363 (Version 1)
Quarter: 2019Q3

REPORT INFORMATION
  Report Type: Spontaneous
  Country: US (occurrence: US)
  Receive Date: 20190607
  Receipt Date: 20190607
  Transmission Date: 20191004
  Serious: No
  Sender: FDA-Public Use
  Company Number: None

PATIENT
  Age: 35 Year
  Sex: Male

DRUGS (1)
  1. BIKTARVY [Suspect]
     Active Substance: BICTEGRAVIR SODIUM\EMTRICITABINE\TENOFOVIR ALAFENAMIDE FUMARATE
     Indication: HIV TEST
     Dosage: 50/200/25MG
     Dates: start: 20180910

REACTIONS (3)
  - Product use complaint [None]
  - Nausea [None]
  - Headache [None]

NARRATIVE: CASE EVENT DATE: 20190129
